FAERS Safety Report 11533399 (Version 1)
Quarter: 2015Q3

REPORT INFORMATION
  Report Type: Spontaneous
  Country: US (occurrence: US)
  Receive Date: 20150921
  Receipt Date: 20150921
  Transmission Date: 20151125
  Serious: No
  Sender: FDA-Public Use
  Company Number: US-009507513-1509USA008672

PATIENT
  Age: 38 Year
  Sex: Female

DRUGS (8)
  1. ATIVAN [Concomitant]
     Active Substance: LORAZEPAM
  2. TRULICITY [Concomitant]
     Active Substance: DULAGLUTIDE
  3. WELLBUTRIN XL [Concomitant]
     Active Substance: BUPROPION HYDROCHLORIDE
  4. ESTRADIOL. [Concomitant]
     Active Substance: ESTRADIOL
  5. TOPAMAX [Concomitant]
     Active Substance: TOPIRAMATE
  6. BELSOMRA [Suspect]
     Active Substance: SUVOREXANT
     Dosage: 20 MG, QPM
     Route: 048
  7. PROTONIX [Concomitant]
     Active Substance: PANTOPRAZOLE SODIUM
  8. REGLAN [Concomitant]
     Active Substance: METOCLOPRAMIDE HYDROCHLORIDE

REACTIONS (6)
  - Feeling abnormal [Recovered/Resolved]
  - Muscle twitching [Recovered/Resolved]
  - Sensory disturbance [Recovered/Resolved]
  - Abnormal dreams [Recovered/Resolved]
  - Dyskinesia [Recovered/Resolved]
  - Poor quality sleep [Recovered/Resolved]
